FAERS Safety Report 10634372 (Version 2)
Quarter: 2014Q4

REPORT INFORMATION
  Report Type: Spontaneous
  Country: CN (occurrence: CN)
  Receive Date: 20141205
  Receipt Date: 20141212
  Transmission Date: 20150529
  Serious: Yes (Hospitalization, Other)
  Sender: FDA-Public Use
  Company Number: CN-ASTRAZENECA-2014SE91853

PATIENT
  Age: 80 Year
  Sex: Female

DRUGS (9)
  1. XINKESHU [Concomitant]
     Dosage: 4 PILLS TID
  2. GINKGO LEAF [Concomitant]
     Indication: CARDIAC DISORDER
     Dosage: 2 PILLS TID
  3. NEXIUM [Suspect]
     Active Substance: ESOMEPRAZOLE MAGNESIUM
     Route: 048
  4. SHEXIANGBAOXIN [Concomitant]
     Dosage: 2 PILLS TID
  5. BIFIDOBAETERIUM TETRAVACCINE [Concomitant]
     Route: 048
  6. PLENDIL [Suspect]
     Active Substance: FELODIPINE
     Indication: CEREBRAL INFARCTION
     Route: 048
  7. PLENDIL [Suspect]
     Active Substance: FELODIPINE
     Indication: HYPERTENSION
     Route: 048
  8. LOSEC [Suspect]
     Active Substance: OMEPRAZOLE
     Indication: REGURGITATION
     Route: 042
     Dates: start: 2012
  9. PREDNISONE. [Concomitant]
     Active Substance: PREDNISONE
     Dosage: 1.5 TABLETS QD

REACTIONS (22)
  - Oral mucosa erosion [Unknown]
  - Haematemesis [Unknown]
  - Blood fibrinogen decreased [Unknown]
  - Gastrointestinal disorder [Unknown]
  - Helicobacter infection [Unknown]
  - Gastrooesophageal reflux disease [Unknown]
  - Gingival erosion [Unknown]
  - Ileus [Unknown]
  - Drug ineffective [Unknown]
  - Intestinal haemorrhage [Unknown]
  - Lower gastrointestinal haemorrhage [Unknown]
  - Colitis [Unknown]
  - Diarrhoea [Not Recovered/Not Resolved]
  - Gastritis erosive [Unknown]
  - Regurgitation [Unknown]
  - Depression [Unknown]
  - Abdominal pain upper [Unknown]
  - Gastric polyps [Unknown]
  - Gastrointestinal motility disorder [Unknown]
  - Mastication disorder [Unknown]
  - Haematochezia [Not Recovered/Not Resolved]
  - Abdominal pain [Unknown]

NARRATIVE: CASE EVENT DATE: 201104
